FAERS Safety Report 18006148 (Version 1)
Quarter: 2020Q3

REPORT INFORMATION
  Report Type: Spontaneous
  Country: US (occurrence: US)
  Receive Date: 20200710
  Receipt Date: 20200710
  Transmission Date: 20201103
  Serious: No
  Sender: FDA-Public Use
  Company Number: None

PATIENT

DRUGS (2)
  1. HEPARIN 1000 UNITS/ML [Suspect]
     Active Substance: HEPARIN SODIUM
     Dosage: DOSAGE: 1000 UNITS/ML
     Route: 058
  2. FAMOTIDINE 10MG/ML [Concomitant]

REACTIONS (1)
  - Product barcode issue [None]
